FAERS Safety Report 8107164-7 (Version None)
Quarter: 2012Q1

REPORT INFORMATION
  Report Type: 
  Country: None (occurrence: None)
  Receive Date: 20120202
  Receipt Date: 20120125
  Transmission Date: 20120608
  Serious: Yes (Hospitalization, Other)
  Sender: FDA-Public Use
  Company Number: RS-ROXANE LABORATORIES, INC.-2012-RO-00542RO

PATIENT
  Age: 53 Year
  Sex: Female

DRUGS (2)
  1. AZATHIOPRINE [Suspect]
     Indication: CROHN'S DISEASE
     Dosage: 100 MG
  2. REMICADE [Suspect]
     Indication: ENTEROCUTANEOUS FISTULA
     Route: 042

REACTIONS (2)
  - ENTEROCUTANEOUS FISTULA [None]
  - DISSEMINATED TUBERCULOSIS [None]
